FAERS Safety Report 21861466 (Version 1)
Quarter: 2023Q1

REPORT INFORMATION
  Report Type: Spontaneous
  Country: US (occurrence: US)
  Receive Date: 20230113
  Receipt Date: 20230113
  Transmission Date: 20230417
  Serious: Yes (Hospitalization)
  Sender: FDA-Public Use
  Company Number: US-JNJFOC-20230117503

PATIENT
  Age: 48 Year
  Sex: Female
  Weight: 91 kg

DRUGS (1)
  1. DIPHENHYDRAMINE HYDROCHLORIDE [Suspect]
     Active Substance: DIPHENHYDRAMINE HYDROCHLORIDE
     Indication: Product used for unknown indication
     Route: 048

REACTIONS (19)
  - Suicide attempt [Unknown]
  - Hypoxia [Recovered/Resolved]
  - Hallucination, visual [Recovered/Resolved]
  - Unresponsive to stimuli [Recovered/Resolved]
  - Dysarthria [Recovered/Resolved]
  - Dry skin [Recovered/Resolved]
  - Aspiration [Recovered/Resolved]
  - Gastrointestinal sounds abnormal [Recovered/Resolved]
  - Speech disorder [Recovered/Resolved]
  - Dysuria [Recovered/Resolved]
  - Delirium [Recovered/Resolved]
  - Overdose [Unknown]
  - Urinary retention [Recovered/Resolved]
  - Pupil fixed [Recovered/Resolved]
  - Vomiting [Recovered/Resolved]
  - Somnolence [Recovered/Resolved]
  - Sinus tachycardia [Recovered/Resolved]
  - Mydriasis [Recovered/Resolved]
  - Dry mouth [Recovered/Resolved]
